FAERS Safety Report 11150975 (Version 1)
Quarter: 2015Q2

REPORT INFORMATION
  Report Type: Spontaneous
  Country: US (occurrence: US)
  Receive Date: 20150601
  Receipt Date: 20150601
  Transmission Date: 20150821
  Serious: Yes (Other)
  Sender: FDA-Public Use
  Company Number: US-BAYER-2015-278781

PATIENT
  Age: 60 Year
  Sex: Female

DRUGS (1)
  1. NEXAVAR [Suspect]
     Active Substance: SORAFENIB
     Indication: THYROID CANCER
     Dosage: UNK

REACTIONS (4)
  - Oedema peripheral [None]
  - Palmar-plantar erythrodysaesthesia syndrome [None]
  - Blister [None]
  - Gait disturbance [None]

NARRATIVE: CASE EVENT DATE: 201503
